FAERS Safety Report 8025730-4 (Version None)
Quarter: 2012Q1

REPORT INFORMATION
  Report Type: 
  Country: None (occurrence: None)
  Receive Date: 20120105
  Receipt Date: 20110110
  Transmission Date: 20120608
  Serious: No
  Sender: FDA-Public Use
  Company Number: US-ABBOTT-11P-163-0696722-00

PATIENT
  Sex: Female
  Weight: 93.524 kg

DRUGS (8)
  1. ZOLOFT [Concomitant]
     Indication: MAJOR DEPRESSION
     Dates: start: 20110103
  2. SYNTHROID [Suspect]
     Indication: THYROID DISORDER
     Dates: start: 20110103
  3. LOVAZA [Concomitant]
     Indication: SUPPLEMENTATION THERAPY
  4. SYNTHROID [Suspect]
     Indication: FATIGUE
  5. CALCIUM ACETATE [Concomitant]
     Indication: MINERAL SUPPLEMENTATION
  6. XALATAN [Concomitant]
     Indication: GLAUCOMA
     Dates: start: 20090901
  7. ACTIVELLA [Concomitant]
     Indication: HOT FLUSH
     Dates: start: 20100601
  8. MULTI-VITAMIN [Concomitant]
     Indication: VITAMIN SUPPLEMENTATION

REACTIONS (4)
  - TONGUE DISCOLOURATION [None]
  - PALPITATIONS [None]
  - FATIGUE [None]
  - LIP DISCOLOURATION [None]
